FAERS Safety Report 5485803-7 (Version None)
Quarter: 2007Q4

REPORT INFORMATION
  Report Type: 
  Country: None (occurrence: None)
  Receive Date: 20071015
  Receipt Date: 20071003
  Transmission Date: 20080405
  Serious: Yes (Life-Threatening, Hospitalization, Other)
  Sender: FDA-Public Use
  Company Number: US-MERCK-0709USA00656

PATIENT
  Age: 60 Year
  Sex: Male

DRUGS (13)
  1. ZOLINZA [Suspect]
     Indication: MYCOSIS FUNGOIDES
     Route: 048
     Dates: start: 20070713, end: 20070725
  2. TARGRETIN [Suspect]
     Route: 048
     Dates: end: 20070725
  3. COUMADIN [Suspect]
     Route: 048
     Dates: end: 20070725
  4. PAXIL [Concomitant]
     Indication: ANTIDEPRESSANT THERAPY
     Route: 048
  5. RITALIN [Concomitant]
     Route: 048
  6. MEGACE [Concomitant]
     Route: 048
  7. LIPITOR [Suspect]
     Indication: HYPERLIPIDAEMIA
     Route: 048
     Dates: end: 20070725
  8. SYNTHROID [Concomitant]
     Indication: HYPOTHYROIDISM
     Route: 048
     Dates: end: 20070920
  9. TOPROL-XL [Concomitant]
     Indication: HYPERTENSION
     Route: 048
  10. OMEGA-3 MARINE TRIGLYCERIDES [Concomitant]
     Route: 065
  11. PRINIVIL [Concomitant]
     Indication: HYPERTENSION
     Route: 048
  12. ZANTAC [Concomitant]
     Route: 048
  13. HYDROXYZINE HYDROCHLORIDE [Concomitant]
     Indication: PRURITUS
     Route: 048

REACTIONS (18)
  - ANAEMIA [None]
  - BACK PAIN [None]
  - BENIGN PROSTATIC HYPERPLASIA [None]
  - BLOOD CREATINE PHOSPHOKINASE INCREASED [None]
  - COAGULOPATHY [None]
  - COUGH [None]
  - DEHYDRATION [None]
  - DRUG INTERACTION [None]
  - FLANK PAIN [None]
  - HAEMATURIA [None]
  - HAEMORRHAGE URINARY TRACT [None]
  - MUSCLE SPASMS [None]
  - MYALGIA [None]
  - NEPHROLITHIASIS [None]
  - OEDEMA PERIPHERAL [None]
  - PYELECTASIA [None]
  - PYREXIA [None]
  - RENAL CYST [None]
